FAERS Safety Report 7357741-6 (Version None)
Quarter: 2011Q1

REPORT INFORMATION
  Report Type: 
  Country: None (occurrence: None)
  Receive Date: 20110309
  Receipt Date: 20110224
  Transmission Date: 20110831
  Serious: Yes (Death)
  Sender: FDA-Public Use
  Company Number: 1000018288

PATIENT
  Age: 84 Year
  Sex: Male

DRUGS (4)
  1. MEMANTINE [Suspect]
     Indication: DEMENTIA ALZHEIMER'S TYPE
     Dosage: 20 MG (20 MG, 1 IN 1 D),ORAL
     Route: 048
     Dates: start: 20091216, end: 20100503
  2. RIVASTIGMINE(RIVASTIGMINE) (TABLET) (RIVASTIGMINE) [Concomitant]
  3. QUETIAPINE (QUETIAPINE) (TABLETS) (QUETIAPINE) [Concomitant]
  4. LORAZEPAM (LORAZEPAM) (TABLETS) (LORAZEPAM) [Concomitant]

REACTIONS (3)
  - CARDIAC DISORDER [None]
  - CARDIAC ARREST [None]
  - URINARY TRACT INFECTION [None]
